FAERS Safety Report 21183843 (Version 3)
Quarter: 2025Q4

REPORT INFORMATION
  Report Type: Spontaneous
  Country: CA (occurrence: CA)
  Receive Date: 20220808
  Receipt Date: 20251124
  Transmission Date: 20260117
  Serious: Yes (Death, Congenital Anomaly, Other)
  Sender: TEVA
  Company Number: CA-TEVA-2022-CA-2061121

PATIENT
  Age: 5 Day
  Weight: 1 kg

DRUGS (7)
  1. LOSARTAN [Suspect]
     Active Substance: LOSARTAN
     Indication: Peripartum cardiomyopathy
     Route: 064
  2. LOSARTAN [Suspect]
     Active Substance: LOSARTAN
     Indication: Peripartum cardiomyopathy
     Dosage: LOSARTAN POTASSIUM
     Route: 064
  3. PERINDOPRIL [Suspect]
     Active Substance: PERINDOPRIL
     Indication: Peripartum cardiomyopathy
     Route: 064
  4. SPIRONOLACTONE [Suspect]
     Active Substance: SPIRONOLACTONE
     Indication: Peripartum cardiomyopathy
     Route: 064
  5. LASIX [Suspect]
     Active Substance: FUROSEMIDE
     Indication: Peripartum cardiomyopathy
     Dosage: DOSE FORM: NOT SPECIFIED
     Route: 064
  6. LOSARTAN POTASSIUM [Suspect]
     Active Substance: LOSARTAN POTASSIUM
     Indication: Peripartum cardiomyopathy
     Route: 064
  7. PERINDOPRIL ERBUMINE [Suspect]
     Active Substance: PERINDOPRIL ERBUMINE
     Indication: Peripartum cardiomyopathy
     Route: 064

REACTIONS (8)
  - Hypocalvaria [Fatal]
  - Apgar score low [Fatal]
  - Foetal exposure during pregnancy [Fatal]
  - Low birth weight baby [Fatal]
  - Premature baby [Fatal]
  - Angiotensin converting enzyme inhibitor foetopathy [Fatal]
  - Oligohydramnios [Fatal]
  - Renal tubular dysfunction [Fatal]
